FAERS Safety Report 18111594 (Version 3)
Quarter: 2021Q2

REPORT INFORMATION
  Report Type: Spontaneous
  Country: US (occurrence: US)
  Receive Date: 20200804
  Receipt Date: 20210629
  Transmission Date: 20210717
  Serious: Yes (Hospitalization)
  Sender: FDA-Public Use
  Company Number: US-TEVA-2020-US-1810015

PATIENT
  Age: 81 Year
  Sex: Male

DRUGS (2)
  1. HYDROMORPHONE [Interacting]
     Active Substance: HYDROMORPHONE
     Indication: PAIN
     Dosage: LOW DOSES (AS NEEDED)
     Route: 042
  2. ZOLPIDEM [Suspect]
     Active Substance: ZOLPIDEM TARTRATE
     Indication: INSOMNIA
     Dosage: EVERY NIGHT
     Route: 065

REACTIONS (3)
  - Depressed level of consciousness [Unknown]
  - Acute respiratory failure [Unknown]
  - Drug interaction [Unknown]
